FAERS Safety Report 17052793 (Version 1)
Quarter: 2019Q4

REPORT INFORMATION
  Report Type: Other
  Country: US (occurrence: US)
  Receive Date: 20191120
  Receipt Date: 20191120
  Transmission Date: 20200122
  Serious: Yes (Hospitalization, Other)
  Sender: FDA-Public Use
  Company Number: US-GUARDIAN DRUG COMPANY-2077039

PATIENT
  Age: 55 Year
  Sex: Male

DRUGS (1)
  1. CHILDRENS IBUPROFEN [Suspect]
     Active Substance: IBUPROFEN
     Indication: PAIN IN JAW
     Route: 048

REACTIONS (7)
  - Generalised tonic-clonic seizure [Recovered/Resolved]
  - Aphasia [Recovered/Resolved]
  - Encephalitis [Recovered/Resolved]
  - Hemiparesis [Recovered/Resolved]
  - Pyrexia [Recovered/Resolved]
  - Facial paralysis [Recovered/Resolved]
  - Agitation [Recovered/Resolved]
